FAERS Safety Report 4970146-8 (Version None)
Quarter: 2006Q2

REPORT INFORMATION
  Report Type: 
  Country: None (occurrence: None)
  Receive Date: 20060406
  Receipt Date: 20060330
  Transmission Date: 20061013
  Serious: Yes (Hospitalization)
  Sender: FDA-Public Use
  Company Number: 13799

PATIENT
  Age: 55 Year
  Sex: Male

DRUGS (18)
  1. FLUOROURACIL [Suspect]
     Indication: COLORECTAL CANCER METASTATIC
     Dosage: 968 MG ONCE IV
     Route: 042
     Dates: start: 20060308, end: 20060308
  2. FLUOROURACIL [Suspect]
     Indication: COLORECTAL CANCER METASTATIC
     Dosage: 5808 MG PER CYCLE IV
     Route: 042
     Dates: start: 20060308, end: 20060308
  3. LEUCOVORIN [Suspect]
     Indication: COLORECTAL CANCER METASTATIC
     Dosage: 968 MG PER CYCLE IV
     Route: 042
     Dates: start: 20060308, end: 20060308
  4. AVASTIN [Suspect]
     Indication: COLORECTAL CANCER METASTATIC
     Dosage: 581 MG PER CYCLE IV
     Route: 042
     Dates: start: 20060308, end: 20060308
  5. ERBITUX [Suspect]
     Indication: COLORECTAL CANCER METASTATIC
     Dosage: 968 MG ONCE IV
     Route: 042
     Dates: start: 20060308, end: 20060308
  6. ERBITUX [Suspect]
     Indication: COLORECTAL CANCER METASTATIC
     Dosage: 600 MG WEEKLY IV
     Route: 042
     Dates: start: 20060308, end: 20060315
  7. ACYCLOVIR [Concomitant]
  8. CLINDAMYCIN [Concomitant]
  9. DIFLUCAN [Concomitant]
  10. GLUCOTROL XL [Concomitant]
  11. HEMOCYTE PLUS [Concomitant]
  12. LORTAB [Concomitant]
  13. MAGIC MOUTHWASH [Concomitant]
  14. MAGNESIUM CITRATE [Concomitant]
  15. MORPHINE SULFATE [Concomitant]
  16. PHENERGAN HCL [Concomitant]
  17. TRIAMCINOLONE ACETONIDE [Concomitant]
  18. ZIAC [Concomitant]

REACTIONS (3)
  - CATHETER RELATED INFECTION [None]
  - DYSPNOEA [None]
  - PYREXIA [None]
